FAERS Safety Report 7745923-0 (Version None)
Quarter: 2011Q3

REPORT INFORMATION
  Report Type: 
  Country: None (occurrence: None)
  Receive Date: 20110913
  Receipt Date: 20110902
  Transmission Date: 20111222
  Serious: No
  Sender: FDA-Public Use
  Company Number: US-PFIZER INC-2005066122

PATIENT
  Sex: Male
  Weight: 70.76 kg

DRUGS (3)
  1. VALSARTAN [Concomitant]
     Route: 065
  2. VIAGRA [Suspect]
     Indication: ILL-DEFINED DISORDER
     Route: 048
     Dates: start: 20050301, end: 20050301
  3. ASPIRIN [Concomitant]
     Route: 065

REACTIONS (1)
  - DRUG INEFFECTIVE [None]
